FAERS Safety Report 10008095 (Version 2)
Quarter: 2014Q1

REPORT INFORMATION
  Report Type: Report from Study
  Country: US (occurrence: US)
  Receive Date: 20140313
  Receipt Date: 20140313
  Transmission Date: 20141002
  Serious: Yes (Hospitalization)
  Sender: FDA-Public Use
  Company Number: US-ABBVIE-14P-163-1203183-00

PATIENT
  Age: 79 Year
  Sex: Female
  Weight: 68.1 kg

DRUGS (8)
  1. HUMIRA [Suspect]
     Indication: PSORIATIC ARTHROPATHY
     Route: 058
     Dates: start: 20140217
  2. ASTELIN [Concomitant]
     Indication: NASAL DRYNESS
  3. TRAMADOL [Concomitant]
     Indication: PAIN
  4. METOPROLOL [Concomitant]
     Indication: HYPERTENSION
  5. SPIRIVA [Concomitant]
     Indication: CHRONIC OBSTRUCTIVE PULMONARY DISEASE
  6. SYMBICORT [Concomitant]
     Indication: DYSPNOEA
  7. LYRICA [Concomitant]
     Indication: PAIN
  8. COLCRYS [Concomitant]
     Indication: GOUT

REACTIONS (6)
  - Asthenia [Not Recovered/Not Resolved]
  - Nausea [Not Recovered/Not Resolved]
  - Vomiting [Not Recovered/Not Resolved]
  - Decreased appetite [Not Recovered/Not Resolved]
  - Blood electrolytes abnormal [Not Recovered/Not Resolved]
  - Renal disorder [Not Recovered/Not Resolved]
